FAERS Safety Report 17652090 (Version 2)
Quarter: 2020Q2

REPORT INFORMATION
  Report Type: Spontaneous
  Country: US (occurrence: US)
  Receive Date: 20200409
  Receipt Date: 20200428
  Transmission Date: 20200713
  Serious: No
  Sender: FDA-Public Use
  Company Number: US-GLAXOSMITHKLINE-US2020AMR061587

PATIENT
  Sex: Female

DRUGS (2)
  1. ZEJULA [Suspect]
     Active Substance: NIRAPARIB
     Indication: OVARIAN CANCER
     Dosage: 200 MG, QD
     Dates: start: 20200222
  2. ZEJULA [Suspect]
     Active Substance: NIRAPARIB
     Dosage: 100 MG, QD
     Dates: start: 202004, end: 20200408

REACTIONS (6)
  - Blepharitis [Unknown]
  - Tongue disorder [Unknown]
  - Pharyngeal swelling [Unknown]
  - Capillary fragility [Unknown]
  - Palate injury [Unknown]
  - Mouth ulceration [Unknown]
